FAERS Safety Report 7019235-7 (Version None)
Quarter: 2010Q3

REPORT INFORMATION
  Report Type: 
  Country: None (occurrence: None)
  Receive Date: 20100928
  Receipt Date: 20100923
  Transmission Date: 20110219
  Serious: Yes (Hospitalization)
  Sender: FDA-Public Use
  Company Number: DE-AMGEN-QUU429185

PATIENT
  Sex: Female
  Weight: 70 kg

DRUGS (8)
  1. ENBREL [Suspect]
     Indication: RHEUMATOID ARTHRITIS
     Route: 058
     Dates: start: 20070101
  2. DIOVAN HCT [Concomitant]
     Indication: HYPERTENSION
     Dosage: 80MG/12.5MG 1X1 DAY
     Route: 048
     Dates: start: 20030401
  3. CALCIUM [Concomitant]
     Indication: OSTEOPOROSIS
     Dosage: UNKNOWN
     Route: 048
     Dates: start: 20080401
  4. LEVOTHYROXINE SODIUM [Concomitant]
     Indication: AUTOIMMUNE THYROIDITIS
     Route: 048
     Dates: start: 20081101
  5. OMEPRAZOLE [Concomitant]
     Dosage: UNKNOWN
  6. ACTONEL [Concomitant]
     Indication: OSTEOPOROSIS
     Dosage: 35MG, FREQUENCY UNKNOWN
     Route: 048
     Dates: start: 20080401
  7. CELEBREX [Concomitant]
     Indication: RHEUMATOID ARTHRITIS
     Route: 048
     Dates: start: 20041201
  8. DIOVAN [Concomitant]
     Indication: HYPERTENSION
     Route: 048
     Dates: start: 20030401

REACTIONS (3)
  - CONDITION AGGRAVATED [None]
  - DRUG INEFFECTIVE [None]
  - RHEUMATOID ARTHRITIS [None]
